FAERS Safety Report 7936867 (Version 2)
Quarter: 2014Q3

REPORT INFORMATION
  Report Type: Report from Study
  Country: US (occurrence: US)
  Receive Date: 20110509
  Receipt Date: 20140903
  Transmission Date: 20150326
  Serious: No
  Sender: FDA-Public Use
  Company Number: US-ALEXION-A201100027

PATIENT

DRUGS (4)
  1. NOVOLOG [Concomitant]
     Active Substance: INSULIN ASPART
     Indication: PRODUCT USED FOR UNKNOWN INDICATION
     Route: 065
  2. PREDNISONE. [Concomitant]
     Active Substance: PREDNISONE
     Indication: HAEMOLYSIS
     Dosage: VARIABLE TAPER
     Route: 048
     Dates: start: 201004, end: 20110129
  3. SOLIRIS [Suspect]
     Active Substance: ECULIZUMAB
     Indication: PAROXYSMAL NOCTURNAL HAEMOGLOBINURIA
     Dosage: 600 MG, QWX4
     Dates: start: 20110103, end: 20110131
  4. SOLIRIS [Suspect]
     Active Substance: ECULIZUMAB
     Dosage: UNK
     Route: 042

REACTIONS (15)
  - Blood count abnormal [Unknown]
  - White blood cell count decreased [Not Recovered/Not Resolved]
  - Muscle spasms [Recovered/Resolved]
  - Dizziness [Recovering/Resolving]
  - Gingival pain [Recovered/Resolved]
  - Ear pain [Unknown]
  - Abdominal pain [Recovered/Resolved]
  - Contusion [Not Recovered/Not Resolved]
  - Heart rate decreased [Unknown]
  - Neutrophil count decreased [Not Recovered/Not Resolved]
  - Musculoskeletal stiffness [Recovered/Resolved]
  - Blood pressure decreased [Recovering/Resolving]
  - Platelet count decreased [Not Recovered/Not Resolved]
  - Haemoglobin decreased [Recovering/Resolving]
  - Blood glucose fluctuation [Recovered/Resolved]

NARRATIVE: CASE EVENT DATE: 20110103
